FAERS Safety Report 9415491 (Version 2)
Quarter: 2013Q3

REPORT INFORMATION
  Report Type: Spontaneous
  Country: US (occurrence: US)
  Receive Date: 20130723
  Receipt Date: 20130805
  Transmission Date: 20140515
  Serious: Yes (Hospitalization, Congenital Anomaly, Other)
  Sender: FDA-Public Use
  Company Number: US-PFIZER INC-2013211841

PATIENT
  Sex: Male

DRUGS (17)
  1. ZOLOFT [Suspect]
     Indication: DEPRESSION
     Dosage: UNK
     Route: 064
     Dates: start: 1998, end: 2004
  2. LASIX [Concomitant]
     Dosage: UNK
     Route: 064
  3. COMBIVENT [Concomitant]
     Dosage: UNK
     Route: 064
  4. COREG [Concomitant]
     Dosage: UNK
     Route: 064
  5. DURADRIN [Concomitant]
     Dosage: UNK
     Route: 064
  6. VASOTEC [Concomitant]
     Dosage: UNK
     Route: 064
  7. PRILOSEC [Concomitant]
     Dosage: UNK
     Route: 064
  8. NORVASC [Concomitant]
     Dosage: UNK
     Route: 064
  9. ALBUTEROL [Concomitant]
     Dosage: UNK
     Route: 064
  10. ZYRTEC [Concomitant]
     Dosage: UNK
     Route: 064
  11. PRENATAL VITAMINS [Concomitant]
     Dosage: UNK
     Route: 064
  12. POTASSIUM [Concomitant]
     Dosage: UNK
     Route: 064
  13. HYDRALAZINE [Concomitant]
     Dosage: UNK
     Route: 064
  14. VIOXX [Concomitant]
     Dosage: UNK
     Route: 064
  15. PROZAC [Concomitant]
     Dosage: UNK
     Route: 064
  16. CLONAZEPAM [Concomitant]
     Dosage: UNK
     Route: 064
  17. ULTRAM [Concomitant]
     Dosage: UNK
     Route: 064

REACTIONS (5)
  - Maternal exposure during pregnancy [Unknown]
  - Persistent foetal circulation [Unknown]
  - Hypospadias [Unknown]
  - Chordee [Unknown]
  - Premature baby [Unknown]
